FAERS Safety Report 4285139-6 (Version None)
Quarter: 2004Q1

REPORT INFORMATION
  Report Type: 
  Country: None (occurrence: None)
  Receive Date: 20040202
  Receipt Date: 20040122
  Transmission Date: 20041129
  Serious: Yes (Hospitalization)
  Sender: FDA-Public Use
  Company Number: MK200401-0331-1

PATIENT
  Age: 67 Year
  Sex: Female

DRUGS (9)
  1. ANAFRANIL [Suspect]
     Dosage: 25MG, TID
  2. SERENACE (HALOPERIDOL 3MG, 2 TABLETS/DAY) [Concomitant]
  3. TRYPTANOL (AMITRIPTYLINE HYDROCHLORIDE 25 MG, 6 TABLETS/DAY) [Concomitant]
  4. PZC 2MG TABLETS/DAY [Concomitant]
  5. CONTOMIN (CHLORPROMAZINE) [Concomitant]
  6. PYRETHIA (PROMETHAZINE HYDROCHLORIDE) [Concomitant]
  7. ROHYPNOL (FLUNITRAZEPAM) [Concomitant]
  8. NELBON (NITRAZEPAM) [Concomitant]
  9. AKINETON [Concomitant]

REACTIONS (1)
  - NEUROLEPTIC MALIGNANT SYNDROME [None]
